FAERS Safety Report 8457541-X (Version None)
Quarter: 2012Q2

REPORT INFORMATION
  Report Type: 
  Country: None (occurrence: None)
  Receive Date: 20120622
  Receipt Date: 20120613
  Transmission Date: 20120825
  Serious: Yes (Hospitalization)
  Sender: FDA-Public Use
  Company Number: US-BIOGENIDEC-2012BI021421

PATIENT
  Age: 51 Year
  Sex: Female

DRUGS (5)
  1. AVONEX [Concomitant]
     Route: 030
     Dates: start: 20080401
  2. AVONEX [Concomitant]
     Indication: MULTIPLE SCLEROSIS
     Route: 030
     Dates: start: 19980501, end: 20080318
  3. AVONEX [Concomitant]
     Route: 030
     Dates: start: 20120604
  4. TYSABRI [Suspect]
     Route: 042
     Dates: start: 20100607, end: 20111101
  5. TYSABRI [Suspect]
     Indication: MULTIPLE SCLEROSIS
     Route: 042
     Dates: start: 20080421, end: 20100126

REACTIONS (3)
  - PNEUMOTHORAX [None]
  - INCISION SITE INFECTION [None]
  - GASTROINTESTINAL DISORDER [None]
